FAERS Safety Report 13601134 (Version 1)
Quarter: 2017Q2

REPORT INFORMATION
  Report Type: Spontaneous
  Country: US (occurrence: US)
  Receive Date: 20170601
  Receipt Date: 20170601
  Transmission Date: 20170830
  Serious: Yes (Hospitalization)
  Sender: FDA-Public Use
  Company Number: None

PATIENT
  Age: 69 Year
  Sex: Female
  Weight: 72.8 kg

DRUGS (2)
  1. CARBOPLATIN. [Suspect]
     Active Substance: CARBOPLATIN
     Dates: end: 20170328
  2. DOXIL [Suspect]
     Active Substance: DOXORUBICIN HYDROCHLORIDE
     Dates: end: 20170328

REACTIONS (15)
  - Acute respiratory failure [None]
  - Pulmonary embolism [None]
  - Anaemia [None]
  - Abdominal pain [None]
  - Dyspnoea [None]
  - Malignant ascites [None]
  - Renal vein thrombosis [None]
  - Hypoxia [None]
  - Deep vein thrombosis [None]
  - Tracheobronchitis [None]
  - Pain in extremity [None]
  - Pleural effusion [None]
  - Vomiting [None]
  - Urinary retention [None]
  - Ileus [None]

NARRATIVE: CASE EVENT DATE: 20170424
